FAERS Safety Report 23196236 (Version 3)
Quarter: 2023Q4

REPORT INFORMATION
  Report Type: Spontaneous
  Country: FR (occurrence: FR)
  Receive Date: 20231117
  Receipt Date: 20231229
  Transmission Date: 20240110
  Serious: Yes (Life-Threatening, Hospitalization, Disabling, Other)
  Sender: FDA-Public Use
  Company Number: FR-SA-SAC20231117000421

PATIENT
  Age: 63 Year
  Sex: Male

DRUGS (2)
  1. DUPILUMAB [Suspect]
     Active Substance: DUPILUMAB
     Indication: Asthma
     Dosage: 200 MG, QOW
     Route: 058
     Dates: start: 202305, end: 202307
  2. BECLOMETHASONE DIPROPIONATE\FORMOTEROL FUMARATE\GLYCOPYRROLATE [Concomitant]
     Active Substance: BECLOMETHASONE DIPROPIONATE\FORMOTEROL FUMARATE\GLYCOPYRROLATE
     Dosage: 2 DF, BID (2 PUFFS MORNING AND EVENING)

REACTIONS (29)
  - Acute respiratory distress syndrome [Unknown]
  - Pneumonia [Unknown]
  - Lung opacity [Unknown]
  - Pleural effusion [Unknown]
  - Pneumocystis jirovecii pneumonia [Recovered/Resolved]
  - Pyrexia [Recovered/Resolved]
  - Restlessness [Unknown]
  - Pulmonary embolism [Unknown]
  - Cytomegalovirus test positive [Unknown]
  - Aspergillus infection [Recovered/Resolved]
  - Oedema peripheral [Unknown]
  - Pulmonary oedema [Unknown]
  - Interstitial lung disease [Recovering/Resolving]
  - Pulmonary fibrosis [Recovering/Resolving]
  - Lung disorder [Recovered/Resolved]
  - Inflammation [Unknown]
  - Oxygen saturation decreased [Recovering/Resolving]
  - Dyspnoea [Recovering/Resolving]
  - Malnutrition [Unknown]
  - Muscle atrophy [Unknown]
  - C-reactive protein increased [Unknown]
  - SARS-CoV-2 test positive [Unknown]
  - Clostridium colitis [Unknown]
  - Diverticulitis [Recovering/Resolving]
  - Blood immunoglobulin G increased [Unknown]
  - Blood albumin decreased [Unknown]
  - Osteoporosis [Unknown]
  - Eosinophilia [Unknown]
  - Condition aggravated [Unknown]

NARRATIVE: CASE EVENT DATE: 20230101
